FAERS Safety Report 9219839 (Version 1)
Quarter: 2013Q2

REPORT INFORMATION
  Report Type: Spontaneous
  Country: GB (occurrence: GB)
  Receive Date: 20130409
  Receipt Date: 20130409
  Transmission Date: 20140414
  Serious: Yes (Life-Threatening, Hospitalization)
  Sender: FDA-Public Use
  Company Number: GB-ROCHE-1205927

PATIENT
  Age: 80 Year
  Sex: Female

DRUGS (4)
  1. ACTILYSE [Suspect]
     Indication: THROMBOLYSIS
     Route: 042
     Dates: start: 20110719, end: 20110719
  2. GLICLAZIDE [Concomitant]
  3. PERINDOPRIL [Concomitant]
  4. PIOGLITAZONE [Concomitant]

REACTIONS (4)
  - Angioedema [Not Recovered/Not Resolved]
  - Aspiration [Not Recovered/Not Resolved]
  - Swollen tongue [Not Recovered/Not Resolved]
  - Vomiting [Not Recovered/Not Resolved]
